FAERS Safety Report 10255034 (Version 1)
Quarter: 2014Q2

REPORT INFORMATION
  Report Type: Spontaneous
  Country: US (occurrence: US)
  Receive Date: 20140624
  Receipt Date: 20140624
  Transmission Date: 20141212
  Serious: No
  Sender: FDA-Public Use
  Company Number: US-MYLANLABS-2013S1015966

PATIENT
  Sex: Male

DRUGS (1)
  1. PRAVASTATIN SODIUM TABLETS USP [Suspect]
     Indication: BLOOD CHOLESTEROL INCREASED

REACTIONS (1)
  - Myalgia [Recovering/Resolving]
